FAERS Safety Report 10237040 (Version 1)
Quarter: 2014Q2

REPORT INFORMATION
  Report Type: Report from Study
  Country: CA (occurrence: CA)
  Receive Date: 20140613
  Receipt Date: 20140613
  Transmission Date: 20141212
  Serious: Yes (Other)
  Sender: FDA-Public Use
  Company Number: CA-JNJFOC-20140605308

PATIENT
  Sex: Female
  Weight: 90.72 kg

DRUGS (2)
  1. REMICADE [Suspect]
     Indication: CROHN^S DISEASE
     Dosage: SWITCHED FREQUENCY APPROXIMATELY IN JUN-2013 OR JUL-2013.
     Route: 042
     Dates: start: 2013
  2. REMICADE [Suspect]
     Indication: CROHN^S DISEASE
     Dosage: STARTED APPROXIMATELY IN 2011/2012
     Route: 042
     Dates: end: 2013

REACTIONS (2)
  - Crohn^s disease [Recovering/Resolving]
  - Fistula [Recovering/Resolving]
